FAERS Safety Report 20153148 (Version 2)
Quarter: 2022Q1

REPORT INFORMATION
  Report Type: Spontaneous
  Country: US (occurrence: US)
  Receive Date: 20211206
  Receipt Date: 20220126
  Transmission Date: 20220424
  Serious: Yes (Other)
  Sender: FDA-Public Use
  Company Number: US-PFIZER INC-202101648322

PATIENT
  Age: 49 Year
  Sex: Female
  Weight: 120 kg

DRUGS (2)
  1. TESSALON [Suspect]
     Active Substance: BENZONATATE
     Dosage: UNK
  2. CYMBALTA [Concomitant]
     Active Substance: DULOXETINE HYDROCHLORIDE
     Indication: Depression
     Dosage: 120 MG, DAILY (TAKES 2, 60MG TABLETS)

REACTIONS (6)
  - Cough [Not Recovered/Not Resolved]
  - Nasal congestion [Not Recovered/Not Resolved]
  - Condition aggravated [Not Recovered/Not Resolved]
  - Poor quality sleep [Unknown]
  - Illness [Unknown]
  - Knee operation [Unknown]

NARRATIVE: CASE EVENT DATE: 20211101
